FAERS Safety Report 16952807 (Version 2)
Quarter: 2019Q4

REPORT INFORMATION
  Report Type: Spontaneous
  Country: FR (occurrence: FR)
  Receive Date: 20191023
  Receipt Date: 20191101
  Transmission Date: 20200122
  Serious: Yes (Hospitalization)
  Sender: FDA-Public Use
  Company Number: FR-ELI_LILLY_AND_COMPANY-FR201910008645

PATIENT
  Age: 24 Year
  Sex: Male

DRUGS (5)
  1. OLANZAPINE. [Suspect]
     Active Substance: OLANZAPINE
     Indication: DELIRIUM
     Dosage: 20 MG, QD
     Route: 005
  2. VENLAFAXINE [Suspect]
     Active Substance: VENLAFAXINE HYDROCHLORIDE
     Indication: MAJOR DEPRESSION
     Dosage: 150 MG, DAILY
     Route: 065
  3. ABILIFY MAINTENA [Suspect]
     Active Substance: ARIPIPRAZOLE
     Indication: PRODUCT USED FOR UNKNOWN INDICATION
     Dosage: 400 MG, MONTHLY (1/M)
     Route: 030
  4. CLOZAPINE. [Concomitant]
     Active Substance: CLOZAPINE
     Indication: PRODUCT USED FOR UNKNOWN INDICATION
     Dosage: 500 MG, QD
     Route: 065
  5. DIAZEPAM. [Concomitant]
     Active Substance: DIAZEPAM
     Indication: PRODUCT USED FOR UNKNOWN INDICATION
     Dosage: UNK
     Route: 065

REACTIONS (3)
  - Off label use [Unknown]
  - Disease recurrence [Unknown]
  - Drug resistance [Unknown]
